FAERS Safety Report 13550467 (Version 1)
Quarter: 2017Q2

REPORT INFORMATION
  Report Type: Spontaneous
  Country: US (occurrence: US)
  Receive Date: 20170516
  Receipt Date: 20170516
  Transmission Date: 20170830
  Serious: Yes (Hospitalization)
  Sender: FDA-Public Use
  Company Number: None

PATIENT
  Age: 61 Year
  Sex: Male
  Weight: 95 kg

DRUGS (10)
  1. ALEVE [Suspect]
     Active Substance: NAPROXEN SODIUM
     Indication: GOUT
     Dosage: RECENT; PO
     Route: 048
  2. LEVSIN [Concomitant]
     Active Substance: HYOSCYAMINE SULFATE
  3. DELTASONE [Concomitant]
     Active Substance: PREDNISONE
  4. ALBUTEROL. [Concomitant]
     Active Substance: ALBUTEROL
  5. IMDUR [Concomitant]
     Active Substance: ISOSORBIDE MONONITRATE
  6. TOPROL XL [Concomitant]
     Active Substance: METOPROLOL SUCCINATE
  7. IMURAN [Concomitant]
     Active Substance: AZATHIOPRINE
  8. ADVAIR HFA [Concomitant]
     Active Substance: FLUTICASONE PROPIONATE\SALMETEROL XINAFOATE
  9. NTG.PRILOSEC [Concomitant]
  10. ALTACE [Concomitant]
     Active Substance: RAMIPRIL

REACTIONS (4)
  - Colitis ulcerative [None]
  - Rectal haemorrhage [None]
  - Therapy non-responder [None]
  - Condition aggravated [None]

NARRATIVE: CASE EVENT DATE: 20160310
